FAERS Safety Report 10210396 (Version 1)
Quarter: 2014Q2

REPORT INFORMATION
  Report Type: Spontaneous
  Country: IT (occurrence: None)
  Receive Date: 20140528
  Receipt Date: 20140528
  Transmission Date: 20141212
  Serious: Yes (Other)
  Sender: FDA-Public Use
  Company Number: 2350467

PATIENT
  Age: 16 Year
  Sex: Female

DRUGS (1)
  1. (METHOTREXATE) [Suspect]
     Indication: OSTEOSARCOMA
     Route: 041

REACTIONS (8)
  - Vomiting [None]
  - Diarrhoea [None]
  - Coagulopathy [None]
  - Aspartate aminotransferase increased [None]
  - Abdominal pain [None]
  - Hypersensitivity [None]
  - Hypotension [None]
  - Alanine aminotransferase increased [None]
